FAERS Safety Report 6528050-X (Version None)
Quarter: 2010Q1

REPORT INFORMATION
  Report Type: 
  Country: None (occurrence: None)
  Receive Date: 20100106
  Receipt Date: 20091224
  Transmission Date: 20100710
  Serious: Yes (Death)
  Sender: FDA-Public Use
  Company Number: TH-BAYER-200939306GPV

PATIENT
  Age: 56 Year
  Sex: Female
  Weight: 40 kg

DRUGS (6)
  1. SORAFENIB [Suspect]
     Indication: LUNG NEOPLASM MALIGNANT
     Dosage: TOTAL DAILY DOSE: 800 MG
     Route: 048
     Dates: start: 20091104, end: 20091113
  2. FENTANYL-100 [Concomitant]
     Indication: TUMOUR PAIN
     Dosage: AS USED: 50 ?G/H
     Route: 062
     Dates: start: 20091013, end: 20091114
  3. MORPHINE [Concomitant]
     Indication: TUMOUR PAIN
     Dosage: AS USED: 2 MG/ML
     Route: 048
     Dates: start: 20090514, end: 20091114
  4. SENNOSIDES A88 [Concomitant]
     Indication: CONSTIPATION PROPHYLAXIS
     Route: 048
     Dates: start: 20090528, end: 20091114
  5. VALIUM [Concomitant]
     Indication: CONVULSION
     Route: 042
     Dates: start: 20091113, end: 20091113
  6. DILANTIN [Concomitant]
     Indication: CONVULSION
     Route: 042
     Dates: start: 20091113, end: 20091113

REACTIONS (2)
  - DYSPNOEA [None]
  - PNEUMONIA [None]
